FAERS Safety Report 14246002 (Version 3)
Quarter: 2019Q1

REPORT INFORMATION
  Report Type: Report from Study
  Country: US (occurrence: US)
  Receive Date: 20171204
  Receipt Date: 20190330
  Transmission Date: 20190417
  Serious: Yes (Other)
  Sender: FDA-Public Use
  Company Number: PHHY2015US157860

PATIENT
  Age: 42 Year
  Sex: Female

DRUGS (1)
  1. GILENYA [Suspect]
     Active Substance: FINGOLIMOD HYDROCHLORIDE
     Indication: MULTIPLE SCLEROSIS
     Dosage: 0.5 MG, QD
     Route: 048
     Dates: start: 20131120

REACTIONS (8)
  - Hypoaesthesia [Recovered/Resolved]
  - Lymphocyte percentage decreased [Unknown]
  - Lymphocyte count decreased [Unknown]
  - Viral infection [Recovered/Resolved]
  - White blood cell count decreased [Recovering/Resolving]
  - Micturition urgency [Unknown]
  - Musculoskeletal chest pain [Recovered/Resolved]
  - Dizziness exertional [Unknown]

NARRATIVE: CASE EVENT DATE: 20150930
